FAERS Safety Report 12160514 (Version 1)
Quarter: 2016Q1

REPORT INFORMATION
  Report Type: Spontaneous
  Country: US (occurrence: US)
  Receive Date: 20160308
  Receipt Date: 20160308
  Transmission Date: 20160526
  Serious: No
  Sender: FDA-Public Use
  Company Number: US-BAYER-2016-045753

PATIENT
  Age: 67 Year
  Sex: Male
  Weight: 169.16 kg

DRUGS (11)
  1. HYDROCHLOROTHIAZIDE. [Concomitant]
     Active Substance: HYDROCHLOROTHIAZIDE
  2. LISINOPRIL. [Concomitant]
     Active Substance: LISINOPRIL
  3. BAYER LOW DOSE [Concomitant]
     Active Substance: ASPIRIN
     Indication: ISCHAEMIC HEART DISEASE PROPHYLAXIS
  4. AMLODIPINE [Concomitant]
     Active Substance: AMLODIPINE BESYLATE
  5. METFORMIN [Concomitant]
     Active Substance: METFORMIN HYDROCHLORIDE
  6. CLONIDINE. [Concomitant]
     Active Substance: CLONIDINE
  7. SIMVASTATIN. [Concomitant]
     Active Substance: SIMVASTATIN
  8. FLOXURIDINE. [Concomitant]
     Active Substance: FLOXURIDINE
  9. GLIPIZIDE. [Concomitant]
     Active Substance: GLIPIZIDE
  10. ALEVE [Suspect]
     Active Substance: NAPROXEN SODIUM
     Indication: MYALGIA
     Dosage: 1 DF, TID
     Route: 048
     Dates: start: 20160304
  11. METOPROLOL. [Concomitant]
     Active Substance: METOPROLOL

REACTIONS (3)
  - Product use issue [None]
  - Drug ineffective [None]
  - Product use issue [None]

NARRATIVE: CASE EVENT DATE: 20160304
